FAERS Safety Report 9680404 (Version 1)
Quarter: 2013Q4

REPORT INFORMATION
  Report Type: Spontaneous
  Country: IT (occurrence: IT)
  Receive Date: 20131111
  Receipt Date: 20131111
  Transmission Date: 20140711
  Serious: Yes (Other)
  Sender: FDA-Public Use
  Company Number: IT-ACCORD-020255

PATIENT
  Age: 44 Year
  Sex: Female

DRUGS (5)
  1. GRANISETRON [Concomitant]
     Indication: ANTIEMETIC SUPPORTIVE CARE
     Route: 042
     Dates: start: 20131002, end: 20131030
  2. TRIMETON [Concomitant]
     Indication: ANTIEMETIC SUPPORTIVE CARE
     Route: 042
     Dates: start: 20131002, end: 20131030
  3. DESAMETASONE FOSF [Concomitant]
     Indication: ANTIEMETIC SUPPORTIVE CARE
     Route: 042
     Dates: start: 20131002, end: 20131030
  4. ZANTAC [Concomitant]
     Indication: ANTIEMETIC SUPPORTIVE CARE
     Route: 042
     Dates: start: 20131002, end: 20131030
  5. PACLITAXEL [Suspect]
     Indication: OVARIAN CANCER
     Dosage: DOSE - 175 MG MG/SQM
     Route: 042
     Dates: start: 20131002, end: 20131030

REACTIONS (3)
  - Chest discomfort [Recovered/Resolved]
  - Dysgeusia [Recovered/Resolved]
  - Rash [Recovered/Resolved]
